FAERS Safety Report 6152358-3 (Version None)
Quarter: 2009Q2

REPORT INFORMATION
  Report Type: 
  Country: None (occurrence: None)
  Receive Date: 20090413
  Receipt Date: 20090403
  Transmission Date: 20091009
  Serious: No
  Sender: FDA-Public Use
  Company Number: US-JNJFOC-20090401607

PATIENT
  Sex: Male
  Weight: 97.52 kg

DRUGS (3)
  1. DURAGESIC-100 [Suspect]
     Indication: BACK PAIN
     Route: 062
  2. SKELAXIN [Concomitant]
     Indication: MUSCLE RELAXANT THERAPY
     Route: 048
  3. NEURONTIN [Concomitant]
     Indication: MUSCLE RELAXANT THERAPY
     Route: 048

REACTIONS (5)
  - APPLICATION SITE BURN [None]
  - APPLICATION SITE RASH [None]
  - INAPPROPRIATE SCHEDULE OF DRUG ADMINISTRATION [None]
  - RASH [None]
  - TREATMENT NONCOMPLIANCE [None]
